FAERS Safety Report 6099386-4 (Version None)
Quarter: 2009Q1

REPORT INFORMATION
  Report Type: 
  Country: None (occurrence: None)
  Receive Date: 20090303
  Receipt Date: 20090225
  Transmission Date: 20090719
  Serious: Yes (Other)
  Sender: FDA-Public Use
  Company Number: JP-PFIZER INC-2009165251

PATIENT

DRUGS (1)
  1. HALCION [Suspect]
     Indication: INSOMNIA
     Dosage: 0.125 MG/DAY
     Route: 048

REACTIONS (1)
  - TUMOUR MARKER INCREASED [None]
